FAERS Safety Report 16049873 (Version 2)
Quarter: 2019Q1

REPORT INFORMATION
  Report Type: Spontaneous
  Country: US (occurrence: US)
  Receive Date: 20190308
  Receipt Date: 20190312
  Transmission Date: 20190418
  Serious: Yes (Other)
  Sender: FDA-Public Use
  Company Number: US-ASTRAZENECA-2018SF33467

PATIENT
  Sex: Male
  Weight: 98 kg

DRUGS (12)
  1. PREVACID [Suspect]
     Active Substance: LANSOPRAZOLE
     Route: 065
     Dates: start: 19990101, end: 20161231
  2. VENOFER [Concomitant]
     Active Substance: IRON SUCROSE
  3. CARVEDILOL. [Concomitant]
     Active Substance: CARVEDILOL
  4. LISINOPRIL. [Concomitant]
     Active Substance: LISINOPRIL
  5. FLUTICASONE. [Concomitant]
     Active Substance: FLUTICASONE
  6. CALCITRIOL. [Concomitant]
     Active Substance: CALCITRIOL
  7. AMLODIPINE [Concomitant]
     Active Substance: AMLODIPINE BESYLATE
  8. SPIRONOLACTONE. [Concomitant]
     Active Substance: SPIRONOLACTONE
  9. ATORVASTATIN [Concomitant]
     Active Substance: ATORVASTATIN
  10. NEXIUM [Suspect]
     Active Substance: ESOMEPRAZOLE MAGNESIUM
     Route: 048
  11. FUROSEMIDE. [Concomitant]
     Active Substance: FUROSEMIDE
  12. PRILOSEC [Suspect]
     Active Substance: OMEPRAZOLE MAGNESIUM
     Route: 048
     Dates: start: 19990101, end: 20161231

REACTIONS (4)
  - Renal injury [Unknown]
  - Chronic kidney disease [Unknown]
  - Acute kidney injury [Unknown]
  - End stage renal disease [Unknown]
